FAERS Safety Report 6174305-0 (Version None)
Quarter: 2009Q2

REPORT INFORMATION
  Report Type: 
  Country: None (occurrence: None)
  Receive Date: 20090430
  Receipt Date: 20080508
  Transmission Date: 20091009
  Serious: No
  Sender: FDA-Public Use
  Company Number: US-ASTRAZENECA-2008UW09517

PATIENT
  Age: 68 Year
  Sex: Female
  Weight: 52.2 kg

DRUGS (9)
  1. NEXIUM [Suspect]
     Indication: GASTROOESOPHAGEAL REFLUX DISEASE
     Route: 048
  2. LEVATHYROID [Concomitant]
  3. POTASSIUM CHLORIDE [Concomitant]
  4. LOTRIL [Concomitant]
  5. CENESTIN [Concomitant]
  6. BONIVA [Concomitant]
  7. CALCIUM [Concomitant]
  8. OTHER SUPPLEMENTS [Concomitant]
  9. FISH OIL [Concomitant]
     Dates: start: 20080401

REACTIONS (2)
  - GASTROOESOPHAGEAL REFLUX DISEASE [None]
  - POLYP [None]
